FAERS Safety Report 14205713 (Version 1)
Quarter: 2017Q4

REPORT INFORMATION
  Report Type: Spontaneous
  Country: US (occurrence: None)
  Receive Date: 20171120
  Receipt Date: 20171120
  Transmission Date: 20180321
  Serious: Yes (Life-Threatening, Hospitalization, Other)
  Sender: FDA-Public Use
  Company Number: None

PATIENT
  Age: 67 Year
  Sex: Female
  Weight: 86.18 kg

DRUGS (6)
  1. TESSALON [Suspect]
     Active Substance: BENZONATATE
     Indication: COUGH
     Dosage: 1 PILL 2X DAY
     Dates: start: 20170206, end: 20170207
  2. BIOTIN [Concomitant]
     Active Substance: BIOTIN
  3. VITAMIN D3 [Concomitant]
     Active Substance: CHOLECALCIFEROL
  4. LEVOTHYROXINE. [Concomitant]
     Active Substance: LEVOTHYROXINE
  5. CALCIUM CARBONATE. [Concomitant]
     Active Substance: CALCIUM CARBONATE
  6. TESSALON [Suspect]
     Active Substance: BENZONATATE
     Indication: VIRAL INFECTION
     Dosage: 1 PILL 2X DAY
     Dates: start: 20170206, end: 20170207

REACTIONS (2)
  - Respiratory arrest [None]
  - Anaphylactic shock [None]

NARRATIVE: CASE EVENT DATE: 20170207
